FAERS Safety Report 7602975-6 (Version None)
Quarter: 2011Q3

REPORT INFORMATION
  Report Type: 
  Country: None (occurrence: None)
  Receive Date: 20110712
  Receipt Date: 20110505
  Transmission Date: 20111222
  Serious: No
  Sender: FDA-Public Use
  Company Number: A0926160A

PATIENT
  Age: 65 Year
  Sex: Male

DRUGS (2)
  1. AVALIDE [Concomitant]
  2. JALYN [Suspect]
     Indication: URINARY TRACT OBSTRUCTION
     Route: 048
     Dates: start: 20110301

REACTIONS (1)
  - SPONTANEOUS PENILE ERECTION [None]
